FAERS Safety Report 18341362 (Version 2)
Quarter: 2020Q4

REPORT INFORMATION
  Report Type: Report from Study
  Country: IN (occurrence: IN)
  Receive Date: 20201003
  Receipt Date: 20201006
  Transmission Date: 20210113
  Serious: Yes (Death, Hospitalization)
  Sender: FDA-Public Use
  Company Number: NVSC2020IN267653

PATIENT
  Age: 59 Year
  Sex: Female

DRUGS (1)
  1. MYFORTIC [Suspect]
     Active Substance: MYCOPHENOLATE SODIUM
     Indication: RENAL TRANSPLANT
     Dosage: 360 MG, BID
     Route: 065
     Dates: start: 20200120

REACTIONS (2)
  - Blood creatinine increased [Fatal]
  - Renal failure [Fatal]

NARRATIVE: CASE EVENT DATE: 20200909
